FAERS Safety Report 18085591 (Version 1)
Quarter: 2020Q3

REPORT INFORMATION
  Report Type: Spontaneous
  Country: US (occurrence: US)
  Receive Date: 20200728
  Receipt Date: 20200728
  Transmission Date: 20201103
  Serious: Yes (Other)
  Sender: FDA-Public Use
  Company Number: None

PATIENT
  Age: 50 Year
  Sex: Male
  Weight: 131.1 kg

DRUGS (23)
  1. REMDESIVIR. [Suspect]
     Active Substance: REMDESIVIR
     Route: 040
     Dates: start: 20200721, end: 20200723
  2. BUDESONIDE NEB [Concomitant]
     Dates: start: 20200721, end: 20200728
  3. GUAIFENESIN. [Concomitant]
     Active Substance: GUAIFENESIN
     Dates: start: 20200720, end: 20200728
  4. ASPIRIN. [Concomitant]
     Active Substance: ASPIRIN
     Dates: start: 20200720, end: 20200728
  5. LORAZEPAM. [Concomitant]
     Active Substance: LORAZEPAM
     Dates: start: 20200721, end: 20200728
  6. HYDRALAZINE INJ [Concomitant]
     Dates: start: 20200720, end: 20200720
  7. AMLODIPINE [Concomitant]
     Active Substance: AMLODIPINE BESYLATE
     Dates: start: 20200720, end: 20200723
  8. REMDESIVIR. [Suspect]
     Active Substance: REMDESIVIR
     Indication: COVID-19
     Dosage: ?          OTHER FREQUENCY:ONCE;?
     Route: 040
     Dates: start: 20200720, end: 20200720
  9. FLUTICASONE NASAL [Concomitant]
     Active Substance: FLUTICASONE
     Dates: start: 20200719, end: 20200728
  10. IVERMECTIN. [Concomitant]
     Active Substance: IVERMECTIN
     Dates: start: 20200720, end: 20200720
  11. LOSARTAN. [Concomitant]
     Active Substance: LOSARTAN
     Dates: start: 20200719, end: 20200728
  12. ATORVASTATIN [Concomitant]
     Active Substance: ATORVASTATIN
     Dates: start: 20200720, end: 20200728
  13. FUROSEMIDE. [Concomitant]
     Active Substance: FUROSEMIDE
     Dates: start: 20200719, end: 20200728
  14. ZINC SULFATE. [Concomitant]
     Active Substance: ZINC SULFATE
     Dates: start: 20200720, end: 20200728
  15. CEFEPIME [Concomitant]
     Active Substance: CEFEPIME HYDROCHLORIDE
     Dates: start: 20200719, end: 20200727
  16. FAMOTIDINE. [Concomitant]
     Active Substance: FAMOTIDINE
     Dates: start: 20200720, end: 20200727
  17. ALBUTEROL INHALATION [Concomitant]
     Active Substance: ALBUTEROL
     Dates: start: 20200719, end: 20200728
  18. MELATONIN [Concomitant]
     Active Substance: MELATONIN
     Dates: start: 20200720, end: 20200728
  19. HEPARIN [Concomitant]
     Active Substance: HEPARIN SODIUM
     Dates: start: 20200720, end: 20200727
  20. THIAMIN [Concomitant]
     Active Substance: THIAMINE
     Dates: start: 20200720, end: 20200727
  21. VANCOMYCIN [Concomitant]
     Active Substance: VANCOMYCIN
     Dates: start: 20200719, end: 20200721
  22. ASCORBIC ACID IV [Concomitant]
     Dates: start: 20200720, end: 20200727
  23. AZITHROMYCIN ANHYDROUS. [Concomitant]
     Active Substance: AZITHROMYCIN ANHYDROUS
     Dates: start: 20200720, end: 20200721

REACTIONS (2)
  - Alanine aminotransferase increased [None]
  - Aspartate aminotransferase increased [None]

NARRATIVE: CASE EVENT DATE: 20200723
